FAERS Safety Report 9007502 (Version 1)
Quarter: 2013Q1

REPORT INFORMATION
  Report Type: Spontaneous
  Country: US (occurrence: US)
  Receive Date: 20130111
  Receipt Date: 20130111
  Transmission Date: 20140127
  Serious: Yes (Other)
  Sender: FDA-Public Use
  Company Number: US-009507513-1007USA03931

PATIENT
  Age: 7 Year
  Sex: Female
  Weight: 27.22 kg

DRUGS (6)
  1. SINGULAIR [Suspect]
     Indication: DIZZINESS
     Dosage: 1 DF, QD
     Route: 048
     Dates: start: 20091127, end: 20091226
  2. SINGULAIR [Suspect]
     Indication: MIDDLE EAR EFFUSION
  3. ZANTAC [Concomitant]
     Indication: GASTROOESOPHAGEAL REFLUX DISEASE
  4. ZANTAC [Concomitant]
     Indication: BRONCHIAL HYPERREACTIVITY
  5. ZYRTEC [Concomitant]
     Indication: BRONCHIAL HYPERREACTIVITY
  6. ZYRTEC [Concomitant]
     Indication: GASTROOESOPHAGEAL REFLUX DISEASE

REACTIONS (4)
  - Anxiety [Unknown]
  - Insomnia [Unknown]
  - Mood altered [Unknown]
  - Sleep terror [Unknown]
